FAERS Safety Report 7012609-X (Version None)
Quarter: 2010Q3

REPORT INFORMATION
  Report Type: 
  Country: None (occurrence: None)
  Receive Date: 20100924
  Receipt Date: 20100914
  Transmission Date: 20110219
  Serious: Yes (Hospitalization)
  Sender: FDA-Public Use
  Company Number: JP-ROCHE-647778

PATIENT
  Sex: Female
  Weight: 60 kg

DRUGS (11)
  1. TOCILIZUMAB [Suspect]
     Indication: RHEUMATOID ARTHRITIS
     Route: 041
     Dates: start: 20090701, end: 20090701
  2. RHEUMATREX [Concomitant]
     Indication: RHEUMATOID ARTHRITIS
     Route: 048
     Dates: end: 20090703
  3. BREDININ [Concomitant]
     Route: 048
     Dates: end: 20090703
  4. ISCOTIN [Concomitant]
     Dosage: REPORTED FORM: PERORAL AGENT.
     Route: 048
     Dates: start: 20090616, end: 20090805
  5. FOLIAMIN [Concomitant]
     Route: 048
  6. CLINORIL [Concomitant]
     Route: 048
  7. RENIVACE [Concomitant]
     Route: 048
  8. CRESTOR [Concomitant]
     Route: 048
  9. ASPIRIN [Concomitant]
     Dosage: FORM: ENTERIC
     Route: 048
  10. PANALDINE [Concomitant]
     Route: 048
  11. GASTER D [Concomitant]
     Route: 048

REACTIONS (1)
  - AGRANULOCYTOSIS [None]
